FAERS Safety Report 5404109-5 (Version None)
Quarter: 2007Q3

REPORT INFORMATION
  Report Type: 
  Country: None (occurrence: None)
  Receive Date: 20070731
  Receipt Date: 20070719
  Transmission Date: 20080115
  Serious: Yes (Hospitalization)
  Sender: FDA-Public Use
  Company Number: S07-USA-02270-01

PATIENT
  Age: 49 Year
  Sex: Female

DRUGS (3)
  1. CELEXA [Suspect]
     Indication: DEPRESSION
     Dosage: 20 MG QD PO
     Route: 048
     Dates: start: 20040101, end: 20070508
  2. CELEXA [Suspect]
     Indication: IRRITABILITY
     Dosage: 20 MG QD PO
     Route: 048
     Dates: start: 20040101, end: 20070508
  3. VYTORIN [Suspect]
     Indication: BLOOD CHOLESTEROL INCREASED
     Dates: start: 20070401, end: 20070508

REACTIONS (5)
  - ARTHRALGIA [None]
  - BLOOD CHOLESTEROL INCREASED [None]
  - DYSTONIA [None]
  - MOVEMENT DISORDER [None]
  - MUSCLE SPASMS [None]
